FAERS Safety Report 17537031 (Version 1)
Quarter: 2020Q1

REPORT INFORMATION
  Report Type: Spontaneous
  Country: FR (occurrence: FR)
  Receive Date: 20200313
  Receipt Date: 20200313
  Transmission Date: 20200409
  Serious: Yes (Hospitalization)
  Sender: FDA-Public Use
  Company Number: FR-ACCORD-175707

PATIENT
  Age: 32 Year
  Sex: Male
  Weight: 82 kg

DRUGS (5)
  1. ZOPICLONE [Concomitant]
     Active Substance: ZOPICLONE
     Route: 048
     Dates: start: 20200118
  2. ARIPIPRAZOLE. [Suspect]
     Active Substance: ARIPIPRAZOLE
     Indication: DEPRESSION
     Dosage: INITIATED AT 5 MG, INCREASED TO 10, THEN TO 15 MG
     Route: 048
     Dates: start: 20200118, end: 20200217
  3. CLORAZEPIC ACID [Concomitant]
     Active Substance: CLORAZEPIC ACID
     Route: 048
     Dates: start: 20200118
  4. LOXAPINE. [Concomitant]
     Active Substance: LOXAPINE
     Route: 048
  5. ESCITALOPRAM/ESCITALOPRAM OXALATE [Concomitant]
     Route: 048

REACTIONS (1)
  - Pancreatitis acute [Recovering/Resolving]

NARRATIVE: CASE EVENT DATE: 20200218
